FAERS Safety Report 25545474 (Version 1)
Quarter: 2025Q3

REPORT INFORMATION
  Report Type: Spontaneous
  Country: US (occurrence: US)
  Receive Date: 20250711
  Receipt Date: 20250711
  Transmission Date: 20251021
  Serious: Yes (Death)
  Sender: MALLINCKRODT
  Company Number: US-MALLINCKRODT-MNK202504059

PATIENT
  Age: 56 Year
  Sex: Female

DRUGS (19)
  1. CORTICOTROPIN [Suspect]
     Active Substance: CORTICOTROPIN
     Indication: Systemic lupus erythematosus
     Route: 058
  2. TOUJEO MAX [Concomitant]
     Active Substance: INSULIN GLARGINE
  3. TIMOLOL MALEATE [Concomitant]
     Active Substance: TIMOLOL MALEATE
  4. XARELTO [Concomitant]
     Active Substance: RIVAROXABAN
  5. ASPIRIN [Concomitant]
     Active Substance: ASPIRIN
  6. ATORVASTATIN CALCIUM [Concomitant]
     Active Substance: ATORVASTATIN CALCIUM
  7. HYDROXYCHLOROQUINE SULFATE [Concomitant]
     Active Substance: HYDROXYCHLOROQUINE SULFATE
  8. LEVOTHYROXINE SODIUM [Concomitant]
     Active Substance: LEVOTHYROXINE SODIUM
  9. AMLODIPINE BESYLATE [Concomitant]
     Active Substance: AMLODIPINE BESYLATE
  10. PREGABALIN [Concomitant]
     Active Substance: PREGABALIN
  11. NIFEDIPINE [Concomitant]
     Active Substance: NIFEDIPINE
  12. ESCITALOPRAM OXALATE [Concomitant]
     Active Substance: ESCITALOPRAM OXALATE
  13. VASCEPA [Concomitant]
     Active Substance: ICOSAPENT ETHYL
  14. LORATADINE [Concomitant]
     Active Substance: LORATADINE
  15. PILOCARPINE HYDROCHLORIDE [Concomitant]
     Active Substance: PILOCARPINE HYDROCHLORIDE
  16. ATROPINE SULFATE [Concomitant]
     Active Substance: ATROPINE SULFATE
  17. LISINOPRIL [Concomitant]
     Active Substance: LISINOPRIL
  18. JARDIANCE [Concomitant]
     Active Substance: EMPAGLIFLOZIN
  19. VITAMIN B2 [Concomitant]
     Active Substance: RIBOFLAVIN

REACTIONS (1)
  - Death [Fatal]

NARRATIVE: CASE EVENT DATE: 20250623
